FAERS Safety Report 8768948 (Version 2)
Quarter: 2012Q4

REPORT INFORMATION
  Report Type: 
  Country: JP (occurrence: JP)
  Receive Date: 20120904
  Receipt Date: 20121030
  Transmission Date: 20130627
  Serious: Yes (Hospitalization)
  Sender: FDA-Public Use
  Company Number: JP-009507513-2012SP015625

PATIENT
  Age: 69 Year
  Sex: Male
  Weight: 65 kg

DRUGS (14)
  1. PEGINTRON [Suspect]
     Indication: HEPATITIS C
     Dosage: 1.5 Microgram per kilogram, qw
     Route: 058
     Dates: start: 20120117, end: 20120117
  2. PEGINTRON [Suspect]
     Dosage: 0.92 Microgram per kilogram, qw
     Route: 058
     Dates: start: 20120124, end: 20120207
  3. PEGINTRON [Suspect]
     Dosage: 0.61 Microgram per kilogram, qw
     Route: 058
     Dates: start: 20120214
  4. PEGINTRON [Suspect]
     Dosage: 0.6 Microgram per kilogram, qw
     Route: 058
     Dates: end: 20120327
  5. PEGINTRON [Suspect]
     Dosage: 0.9 Microgram per kilogram, qw
     Route: 058
     Dates: start: 20120410
  6. REBETOL [Suspect]
     Indication: HEPATITIS C
     Dosage: 800 mg, QD
     Route: 048
     Dates: start: 20120117, end: 20120122
  7. REBETOL [Suspect]
     Dosage: 200 mg, QD
     Route: 048
     Dates: start: 20120121, end: 20120128
  8. REBETOL [Suspect]
     Dosage: 400 mg, QD
     Route: 048
     Dates: start: 20120129
  9. REBETOL [Suspect]
     Dosage: 200 mg, QD
     Route: 048
     Dates: start: 20120221
  10. TELAVIC [Suspect]
     Indication: HEPATITIS C
     Dosage: 2250 mg, qd
     Route: 048
     Dates: start: 20120117, end: 20120123
  11. TELAVIC [Suspect]
     Dosage: 750 mg, QD
     Route: 048
     Dates: start: 20120124, end: 20120207
  12. TELAVIC [Suspect]
     Dosage: 1500 mg, qd
     Route: 048
     Dates: start: 20120207, end: 20120214
  13. TELAVIC [Suspect]
     Dosage: 1000 mg, qd
     Route: 048
     Dates: start: 20120214, end: 20120410
  14. AMARYL [Concomitant]
     Indication: DIABETES MELLITUS
     Dosage: FORMULATION: POR
     Route: 048

REACTIONS (6)
  - Renal disorder [Recovered/Resolved]
  - Hyperuricaemia [Recovered/Resolved]
  - Decreased appetite [Recovering/Resolving]
  - Blood creatinine increased [Unknown]
  - Renal impairment [Unknown]
  - Pyrexia [Unknown]
